FAERS Safety Report 17812546 (Version 1)
Quarter: 2020Q2

REPORT INFORMATION
  Report Type: Spontaneous
  Country: FR (occurrence: FR)
  Receive Date: 20200521
  Receipt Date: 20200521
  Transmission Date: 20200714
  Serious: Yes (Other)
  Sender: FDA-Public Use
  Company Number: FR-TEVA-2020-FR-1238365

PATIENT
  Age: 76 Year
  Sex: Male

DRUGS (3)
  1. INORIAL [Suspect]
     Active Substance: BILASTINE
     Indication: ANTIALLERGIC THERAPY
     Dosage: 1 DOSAGE FORMS
     Route: 048
     Dates: start: 20180907, end: 20180910
  2. AMOXICILLINE [Suspect]
     Active Substance: AMOXICILLIN
     Indication: ANTIBIOTIC THERAPY
     Dosage: 1 DOSAGE FORMS
     Route: 048
     Dates: start: 20180907, end: 20180910
  3. BISEPTINE [Suspect]
     Active Substance: BENZALKONIUM CHLORIDE\BENZYL ALCOHOL\CHLORHEXIDINE
     Indication: INFECTION PROPHYLAXIS
     Dosage: 1 DOSAGE FORMS
     Route: 048
     Dates: start: 20180907, end: 20180910

REACTIONS (2)
  - Face oedema [Recovered/Resolved]
  - Urticaria [Recovered/Resolved]

NARRATIVE: CASE EVENT DATE: 20180910
